FAERS Safety Report 20199411 (Version 1)
Quarter: 2021Q4

REPORT INFORMATION
  Report Type: Spontaneous
  Country: US (occurrence: US)
  Receive Date: 20211217
  Receipt Date: 20211217
  Transmission Date: 20220303
  Serious: No
  Sender: FDA-Public Use
  Company Number: US-PACIRA-2020000573

PATIENT
  Age: 25 Year
  Sex: Female
  Weight: 84 kg

DRUGS (4)
  1. EXPAREL [Suspect]
     Active Substance: BUPIVACAINE
     Dosage: 20 ML ADMIXED WITH 60 ML 0.25% BUPIVACAINE
     Route: 050
     Dates: start: 20201231, end: 20201231
  2. BUPIVACAINE [Suspect]
     Active Substance: BUPIVACAINE
     Dosage: 60 ML ADMIXED WITH 20 ML OF EXPAREL
     Dates: start: 20201231, end: 20201231
  3. LIDOCAINE [Concomitant]
     Active Substance: LIDOCAINE
     Dosage: 30 ML OF PLAIN LIDOCAINE AND 1 MG OF EPINEPHRINE
     Route: 065
     Dates: start: 20201231, end: 20201231
  4. EPINEPHRINE [Concomitant]
     Active Substance: EPINEPHRINE
     Dosage: 1 MG OF EPINEPHRINE AND 30 ML OF?PLAIN LIDOCAINE
     Route: 065
     Dates: start: 20201231, end: 20201231

REACTIONS (1)
  - Labelled drug-drug interaction medication error [Not Recovered/Not Resolved]

NARRATIVE: CASE EVENT DATE: 20201231
